FAERS Safety Report 8114884-7 (Version None)
Quarter: 2012Q1

REPORT INFORMATION
  Report Type: 
  Country: None (occurrence: None)
  Receive Date: 20120206
  Receipt Date: 20120126
  Transmission Date: 20120608
  Serious: No
  Sender: FDA-Public Use
  Company Number: US-JNJFOC-20120112319

PATIENT
  Sex: Male
  Weight: 141.07 kg

DRUGS (8)
  1. DURAGESIC-100 [Suspect]
     Route: 062
  2. MORPHINE [Concomitant]
     Indication: NEUROPATHY PERIPHERAL
     Route: 065
  3. DURAGESIC-100 [Suspect]
     Indication: GOUT
     Route: 062
     Dates: start: 20070101
  4. MORPHINE [Concomitant]
     Indication: GOUT
     Route: 065
  5. DURAGESIC-100 [Suspect]
     Route: 062
     Dates: start: 20120118
  6. DURAGESIC-100 [Suspect]
     Route: 062
     Dates: start: 20120118
  7. DURAGESIC-100 [Suspect]
     Indication: NEUROPATHY PERIPHERAL
     Route: 062
     Dates: start: 20070101
  8. DURAGESIC-100 [Suspect]
     Route: 062

REACTIONS (5)
  - DRUG INEFFECTIVE [None]
  - EXPIRED DRUG ADMINISTERED [None]
  - WEIGHT DECREASED [None]
  - DRUG ADMINISTERED AT INAPPROPRIATE SITE [None]
  - FEAR [None]
